FAERS Safety Report 7680612-2 (Version None)
Quarter: 2011Q3

REPORT INFORMATION
  Report Type: 
  Country: None (occurrence: None)
  Receive Date: 20110812
  Receipt Date: 20110801
  Transmission Date: 20111222
  Serious: Yes (Life-Threatening, Hospitalization, Other)
  Sender: FDA-Public Use
  Company Number: US-ELI_LILLY_AND_COMPANY-US201108001188

PATIENT
  Age: 9 Year

DRUGS (1)
  1. OLANZAPINE [Suspect]
     Route: 048

REACTIONS (3)
  - FALL [None]
  - UNRESPONSIVE TO STIMULI [None]
  - OVERDOSE [None]
